FAERS Safety Report 16231036 (Version 2)
Quarter: 2019Q2

REPORT INFORMATION
  Report Type: Report from Study
  Country: None (occurrence: ES)
  Receive Date: 20190423
  Receipt Date: 20190511
  Transmission Date: 20190711
  Serious: Yes (Hospitalization, Other)
  Sender: FDA-Public Use
  Company Number: ES-ABBVIE-19S-144-2750290-00

PATIENT
  Age: 70 Year
  Sex: Male
  Weight: 70 kg

DRUGS (7)
  1. DUPHALAC [Concomitant]
     Active Substance: LACTULOSE
     Indication: PRODUCT USED FOR UNKNOWN INDICATION
     Dates: start: 2014
  2. LANSOPRAZOLE. [Concomitant]
     Active Substance: LANSOPRAZOLE
     Indication: PRODUCT USED FOR UNKNOWN INDICATION
  3. LEXATIN [Concomitant]
     Indication: PRODUCT USED FOR UNKNOWN INDICATION
  4. LYRICA [Concomitant]
     Active Substance: PREGABALIN
  5. ROPIRINOL [Concomitant]
     Indication: PRODUCT USED FOR UNKNOWN INDICATION
  6. DUODOPA [Suspect]
     Active Substance: CARBIDOPA\LEVODOPA
     Indication: PARKINSON^S DISEASE
     Route: 050
     Dates: start: 20160427, end: 20190508
  7. LYRICA [Concomitant]
     Active Substance: PREGABALIN
     Indication: PRODUCT USED FOR UNKNOWN INDICATION

REACTIONS (23)
  - Intervertebral discitis [Recovering/Resolving]
  - Decubitus ulcer [Recovering/Resolving]
  - Pyrexia [Recovered/Resolved]
  - Embedded device [Unknown]
  - Condition aggravated [Not Recovered/Not Resolved]
  - Loss of personal independence in daily activities [Unknown]
  - Tachypnoea [Unknown]
  - Pallor [Unknown]
  - Chronic disease [Unknown]
  - Dysphonia [Not Recovered/Not Resolved]
  - Dry mouth [Unknown]
  - Pharyngeal erythema [Unknown]
  - Rales [Unknown]
  - Wound infection pseudomonas [Unknown]
  - Muscle atrophy [Unknown]
  - Stoma site infection [Unknown]
  - Gait disturbance [Unknown]
  - Cauda equina syndrome [Recovering/Resolving]
  - Weight decreased [Recovering/Resolving]
  - Somnolence [Unknown]
  - Paraspinal abscess [Recovering/Resolving]
  - Normochromic normocytic anaemia [Unknown]
  - Stoma site erythema [Unknown]

NARRATIVE: CASE EVENT DATE: 2019
